FAERS Safety Report 7229858-8 (Version None)
Quarter: 2011Q1

REPORT INFORMATION
  Report Type: 
  Country: None (occurrence: None)
  Receive Date: 20110117
  Receipt Date: 20110105
  Transmission Date: 20110831
  Serious: Yes (Other)
  Sender: FDA-Public Use
  Company Number: PHHY2011JP01141

PATIENT
  Age: 4 Year
  Sex: Male

DRUGS (1)
  1. TACROLIMUS [Suspect]

REACTIONS (6)
  - NEUROTOXICITY [None]
  - ACUTE MYELOID LEUKAEMIA [None]
  - CONVULSION [None]
  - ENCEPHALOPATHY [None]
  - NUCLEAR MAGNETIC RESONANCE IMAGING ABNORMAL [None]
  - RENAL DISORDER [None]
